FAERS Safety Report 16909091 (Version 1)
Quarter: 2019Q4

REPORT INFORMATION
  Report Type: Spontaneous
  Country: FR (occurrence: FR)
  Receive Date: 20191011
  Receipt Date: 20191011
  Transmission Date: 20200122
  Serious: Yes (Other)
  Sender: FDA-Public Use
  Company Number: FR-PFIZER INC-2019435459

PATIENT
  Age: 31 Year
  Sex: Female

DRUGS (4)
  1. LUTERAN [Suspect]
     Active Substance: CHLORMADINONE ACETATE
     Dosage: UNK
     Route: 048
  2. NOCERTONE [Suspect]
     Active Substance: OXETORONE
     Dosage: UNK
     Route: 048
     Dates: start: 201907, end: 20190904
  3. LYRICA [Suspect]
     Active Substance: PREGABALIN
     Indication: PAIN
     Dosage: UNK
     Route: 048
  4. COSENTYX [Suspect]
     Active Substance: SECUKINUMAB
     Indication: SPONDYLITIS
     Dosage: 1 DF, WEEKLY
     Route: 058
     Dates: start: 201803

REACTIONS (1)
  - Colitis microscopic [Not Recovered/Not Resolved]

NARRATIVE: CASE EVENT DATE: 201907
